FAERS Safety Report 9046498 (Version 1)
Quarter: 2013Q1

REPORT INFORMATION
  Report Type: Spontaneous
  Country: US (occurrence: None)
  Receive Date: 20130128
  Receipt Date: 20130128
  Transmission Date: 20140127
  Serious: Yes (Hospitalization, Other)
  Sender: FDA-Public Use
  Company Number: None

PATIENT
  Age: 30 Year
  Sex: Female
  Weight: 109.32 kg

DRUGS (1)
  1. LAMOTRIGINE [Suspect]
     Indication: CONVULSION
     Route: 048
     Dates: start: 20130101, end: 20130107

REACTIONS (10)
  - Grand mal convulsion [None]
  - Product quality issue [None]
  - Feeling abnormal [None]
  - Aphasia [None]
  - Drug withdrawal convulsions [None]
  - Impaired driving ability [None]
  - Product substitution issue [None]
  - Drug level decreased [None]
  - Petit mal epilepsy [None]
  - Memory impairment [None]
